FAERS Safety Report 16153177 (Version 3)
Quarter: 2019Q2

REPORT INFORMATION
  Report Type: Report from Study
  Country: CA (occurrence: CA)
  Receive Date: 20190403
  Receipt Date: 20190517
  Transmission Date: 20190711
  Serious: Yes (Other)
  Sender: FDA-Public Use
  Company Number: CA-ASTRAZENECA-2019SE44021

PATIENT
  Age: 19675 Day
  Sex: Female

DRUGS (9)
  1. SYMBICORT [Concomitant]
     Active Substance: BUDESONIDE\FORMOTEROL FUMARATE DIHYDRATE
  2. PROLIA [Concomitant]
     Active Substance: DENOSUMAB
  3. FASENRA [Suspect]
     Active Substance: BENRALIZUMAB
     Indication: ASTHMA
     Dosage: 30.0MG UNKNOWN
     Route: 058
     Dates: start: 20190314
  4. BENADRYL [Suspect]
     Active Substance: DIPHENHYDRAMINE HYDROCHLORIDE
     Route: 065
  5. XOLAIR [Concomitant]
     Active Substance: OMALIZUMAB
  6. LANTUS [Concomitant]
     Active Substance: INSULIN GLARGINE
  7. VENTOLIN [Concomitant]
     Active Substance: ALBUTEROL SULFATE
  8. HUMALOG [Concomitant]
     Active Substance: INSULIN LISPRO
  9. PREDNISONE. [Concomitant]
     Active Substance: PREDNISONE

REACTIONS (9)
  - Paraesthesia oral [Not Recovered/Not Resolved]
  - Dysgeusia [Recovered/Resolved]
  - Nausea [Not Recovered/Not Resolved]
  - Asthma [Unknown]
  - Erythema [Recovered/Resolved]
  - Vomiting [Not Recovered/Not Resolved]
  - Pruritus [Recovering/Resolving]
  - Oral discomfort [Not Recovered/Not Resolved]
  - Hypertensive crisis [Unknown]

NARRATIVE: CASE EVENT DATE: 20190314
